FAERS Safety Report 14426148 (Version 1)
Quarter: 2018Q1

REPORT INFORMATION
  Report Type: Spontaneous
  Country: US (occurrence: US)
  Receive Date: 20180123
  Receipt Date: 20180123
  Transmission Date: 20180509
  Serious: No
  Sender: FDA-Public Use
  Company Number: PHEH2018US002834

PATIENT
  Age: 66 Year
  Sex: Female

DRUGS (1)
  1. VOTRIENT [Suspect]
     Active Substance: PAZOPANIB HYDROCHLORIDE
     Indication: RENAL CANCER
     Dosage: 800 MG, QD
     Route: 048
     Dates: start: 20171130, end: 20180101

REACTIONS (4)
  - Stomatitis [Unknown]
  - Hepatic enzyme increased [Unknown]
  - Abnormal faeces [Unknown]
  - Oral discomfort [Unknown]

NARRATIVE: CASE EVENT DATE: 20171231
